FAERS Safety Report 15965090 (Version 2)
Quarter: 2019Q1

REPORT INFORMATION
  Report Type: Spontaneous
  Country: US (occurrence: US)
  Receive Date: 20190215
  Receipt Date: 20190228
  Transmission Date: 20190418
  Serious: Yes (Other)
  Sender: FDA-Public Use
  Company Number: US-009507513-1902USA004909

PATIENT
  Age: 8 Month
  Sex: Male

DRUGS (6)
  1. CEFEPIME [Concomitant]
     Active Substance: CEFEPIME HYDROCHLORIDE
     Dosage: UNK
  2. SULFAMETHOXAZOLE (+) TRIMETHOPRIM [Concomitant]
     Active Substance: SULFAMETHOXAZOLE\TRIMETHOPRIM
     Dosage: UNK
  3. FK-506 [Concomitant]
     Active Substance: TACROLIMUS
     Dosage: UNK
  4. REBETOL [Suspect]
     Active Substance: RIBAVIRIN
     Indication: PARAINFLUENZAE VIRUS INFECTION
     Dosage: 15 MILLIGRAM/KILOGRAM, QD
     Route: 048
  5. MYCOPHENOLATE MOFETIL. [Concomitant]
     Active Substance: MYCOPHENOLATE MOFETIL
     Dosage: UNK
  6. GANCICLOVIR. [Concomitant]
     Active Substance: GANCICLOVIR
     Dosage: UNK

REACTIONS (2)
  - Haemolytic anaemia [Unknown]
  - Off label use [Unknown]
